FAERS Safety Report 13745101 (Version 1)
Quarter: 2017Q3

REPORT INFORMATION
  Report Type: Spontaneous
  Country: US (occurrence: US)
  Receive Date: 20170711
  Receipt Date: 20170711
  Transmission Date: 20171127
  Serious: Yes (Life-Threatening, Disabling)
  Sender: FDA-Public Use
  Company Number: None

PATIENT
  Age: 40 Year
  Sex: Male
  Weight: 68.85 kg

DRUGS (2)
  1. KLONOPIN [Suspect]
     Active Substance: CLONAZEPAM
  2. XANAX [Suspect]
     Active Substance: ALPRAZOLAM
     Indication: GENERALISED ANXIETY DISORDER
     Dosage: ?          OTHER STRENGTH:MG;?
     Route: 048
     Dates: start: 20160601, end: 20160901

REACTIONS (20)
  - Pain [None]
  - Hyperacusis [None]
  - Malaise [None]
  - Fatigue [None]
  - Feeling abnormal [None]
  - Hallucination [None]
  - Burning sensation [None]
  - Neuralgia [None]
  - Dizziness [None]
  - Paraesthesia [None]
  - Seizure [None]
  - Photosensitivity reaction [None]
  - Tachyphrenia [None]
  - Drug withdrawal syndrome [None]
  - Gastric disorder [None]
  - Depression [None]
  - Anxiety [None]
  - Head discomfort [None]
  - Confusional state [None]
  - Dyskinesia [None]

NARRATIVE: CASE EVENT DATE: 20160715
